FAERS Safety Report 7304476-1 (Version None)
Quarter: 2011Q1

REPORT INFORMATION
  Report Type: 
  Country: None (occurrence: None)
  Receive Date: 20110221
  Receipt Date: 20110216
  Transmission Date: 20110831
  Serious: Yes (Other)
  Sender: FDA-Public Use
  Company Number: US-AMGEN-QUU410236

PATIENT
  Age: 54 Year
  Sex: Female
  Weight: 128 kg

DRUGS (6)
  1. LANSOPRAZOLE [Concomitant]
     Dosage: 30 MG, UNK
  2. NPLATE [Suspect]
     Indication: IDIOPATHIC THROMBOCYTOPENIC PURPURA
     Dosage: 7 A?G/KG, UNK
     Dates: start: 20091008, end: 20091203
  3. FUROSEMIDE [Concomitant]
     Dosage: 10 MG, UNK
  4. CORTICOSTEROID NOS [Concomitant]
     Dosage: UNK UNK, UNK
     Dates: start: 20090811
  5. PLATELETS [Concomitant]
  6. AVALIDE [Concomitant]
     Dosage: UNK UNK, UNK

REACTIONS (1)
  - THERAPEUTIC RESPONSE DECREASED [None]
